FAERS Safety Report 18775957 (Version 2)
Quarter: 2021Q1

REPORT INFORMATION
  Report Type: Spontaneous
  Country: CH (occurrence: CH)
  Receive Date: 20210122
  Receipt Date: 20210211
  Transmission Date: 20210419
  Serious: Yes (Death)
  Sender: FDA-Public Use
  Company Number: CH-009507513-2101CHE007729

PATIENT
  Age: 71 Year
  Sex: Male

DRUGS (5)
  1. IMIPENEM AND CILASTATIN [Suspect]
     Active Substance: CILASTATIN SODIUM\IMIPENEM
     Indication: CAMPYLOBACTER INFECTION
  2. IMIPENEM AND CILASTATIN [Suspect]
     Active Substance: CILASTATIN SODIUM\IMIPENEM
     Indication: MENINGITIS
  3. IMIPENEM AND CILASTATIN [Suspect]
     Active Substance: CILASTATIN SODIUM\IMIPENEM
     Indication: BACTERAEMIA
  4. IMIPENEM AND CILASTATIN [Suspect]
     Active Substance: CILASTATIN SODIUM\IMIPENEM
     Indication: ENDOCARDITIS
     Dosage: UNK
     Dates: start: 2019
  5. IMIPENEM AND CILASTATIN [Suspect]
     Active Substance: CILASTATIN SODIUM\IMIPENEM
     Indication: INFECTIVE ANEURYSM

REACTIONS (2)
  - Intentional product misuse [Fatal]
  - Off label use [Unknown]

NARRATIVE: CASE EVENT DATE: 2019
